FAERS Safety Report 18160266 (Version 1)
Quarter: 2020Q3

REPORT INFORMATION
  Report Type: Spontaneous
  Country: JP (occurrence: JP)
  Receive Date: 20200818
  Receipt Date: 20200818
  Transmission Date: 20201103
  Serious: Yes (Death, Hospitalization)
  Sender: FDA-Public Use
  Company Number: JP-TEVA-2020-JP-1814975

PATIENT
  Age: 47 Year
  Sex: Female

DRUGS (4)
  1. COLCHICINE. [Suspect]
     Active Substance: COLCHICINE
     Indication: BEHCET^S SYNDROME
     Route: 048
  2. EDOXABAN [Suspect]
     Active Substance: EDOXABAN TOSYLATE
     Indication: PULMONARY ARTERY THROMBOSIS
     Route: 048
  3. HEPARIN [Suspect]
     Active Substance: HEPARIN SODIUM
     Indication: PULMONARY ARTERY THROMBOSIS
     Route: 065
  4. WARFARIN [Suspect]
     Active Substance: WARFARIN
     Indication: PULMONARY ARTERY THROMBOSIS
     Route: 048

REACTIONS (3)
  - Haemoptysis [Fatal]
  - Pulmonary alveolar haemorrhage [Fatal]
  - Drug ineffective [Unknown]
